FAERS Safety Report 14369347 (Version 1)
Quarter: 2018Q1

REPORT INFORMATION
  Report Type: Spontaneous
  Country: CN (occurrence: CN)
  Receive Date: 20180109
  Receipt Date: 20180109
  Transmission Date: 20180509
  Serious: Yes (Hospitalization)
  Sender: FDA-Public Use
  Company Number: CN-BAXTER-2018BAX000440

PATIENT
  Age: 44 Year
  Sex: Female
  Weight: 43 kg

DRUGS (4)
  1. GLUCOSE INJECTION [Suspect]
     Active Substance: DEXTROSE
     Indication: MEDICATION DILUTION
     Route: 041
     Dates: start: 20170202, end: 20170202
  2. CYCLOPHOSPHAMIDE FOR INJECTION [Suspect]
     Active Substance: CYCLOPHOSPHAMIDE
     Indication: CHEMOTHERAPY
     Route: 041
     Dates: start: 20170201, end: 20170201
  3. DOXORUBICIN HYDROCHLORIDE LIPOSOME INJECTION [Suspect]
     Active Substance: DOXORUBICIN HYDROCHLORIDE
     Indication: CHEMOTHERAPY
     Route: 041
     Dates: start: 20170202, end: 20170202
  4. 0.9% SODIUM CHLORIDE INJECTION [Suspect]
     Active Substance: SODIUM CHLORIDE
     Indication: MEDICATION DILUTION
     Route: 041
     Dates: start: 20170201, end: 20170201

REACTIONS (5)
  - Bone marrow failure [Recovering/Resolving]
  - Pyrexia [Recovering/Resolving]
  - Aversion [Recovering/Resolving]
  - Fatigue [Recovering/Resolving]
  - Temperature intolerance [None]

NARRATIVE: CASE EVENT DATE: 20170211
